FAERS Safety Report 14167974 (Version 2)
Quarter: 2018Q2

REPORT INFORMATION
  Report Type: Spontaneous
  Country: US (occurrence: US)
  Receive Date: 20171107
  Receipt Date: 20180515
  Transmission Date: 20180711
  Serious: No
  Sender: FDA-Public Use
  Company Number: US-SA-2017SA152551

PATIENT
  Age: 74 Year
  Sex: Female

DRUGS (5)
  1. TOUJEO [Suspect]
     Active Substance: INSULIN GLARGINE
     Indication: TYPE 2 DIABETES MELLITUS
     Dosage: DOSE:20 UNIT(S)
     Route: 051
     Dates: end: 20170811
  2. SOLOSTAR [Suspect]
     Active Substance: DEVICE
     Indication: TYPE 2 DIABETES MELLITUS
  3. SOLOSTAR [Suspect]
     Active Substance: DEVICE
     Indication: TYPE 2 DIABETES MELLITUS
     Dates: end: 20170811
  4. VICTOZA [Concomitant]
     Active Substance: LIRAGLUTIDE
  5. TOUJEO [Suspect]
     Active Substance: INSULIN GLARGINE
     Indication: TYPE 2 DIABETES MELLITUS
     Dosage: START DATE :6-9 MONTHS AGO DOSE:10 UNIT(S)
     Route: 051

REACTIONS (4)
  - Pruritus [Not Recovered/Not Resolved]
  - Blood glucose abnormal [Not Recovered/Not Resolved]
  - Rash generalised [Not Recovered/Not Resolved]
  - Skin reaction [Not Recovered/Not Resolved]
